FAERS Safety Report 24378169 (Version 1)
Quarter: 2024Q3

REPORT INFORMATION
  Report Type: Report from Study
  Country: US (occurrence: US)
  Receive Date: 20240930
  Receipt Date: 20240930
  Transmission Date: 20241017
  Serious: Yes (Other)
  Sender: ROCHE
  Company Number: US-ROCHE-10000087983

PATIENT
  Age: 36 Year
  Sex: Male

DRUGS (1)
  1. ESBRIET [Suspect]
     Active Substance: PIRFENIDONE
     Indication: Pulmonary fibrosis
     Dosage: TAKE 1 TABLET BY MOUTH IN THE MORNING AND TAKE 1 TABLET BY MOUTH IN THE EVENING AND TAKE 1 TABLET BY
     Route: 048

REACTIONS (1)
  - Pulmonary fibrosis [Unknown]
